FAERS Safety Report 20931573 (Version 5)
Quarter: 2025Q1

REPORT INFORMATION
  Report Type: Report from Study
  Country: US (occurrence: US)
  Receive Date: 20220608
  Receipt Date: 20250208
  Transmission Date: 20250409
  Serious: Yes (Other)
  Sender: ROCHE
  Company Number: US-ROCHE-3109725

PATIENT
  Age: 60 Year
  Sex: Female
  Weight: 136.08 kg

DRUGS (11)
  1. OCREVUS [Suspect]
     Active Substance: OCRELIZUMAB
     Indication: Multiple sclerosis
     Dosage: ADMINISTERED IN CLINIC, INFUSE 600MG INTRAVENOUSLY EVERY 6 MONTH(S)
     Route: 042
     Dates: start: 2017
  2. BENADRYL [Suspect]
     Active Substance: DIPHENHYDRAMINE HYDROCHLORIDE
     Indication: Product used for unknown indication
     Route: 065
  3. OXYBUTYNIN [Concomitant]
     Active Substance: OXYBUTYNIN
     Indication: Incontinence
     Route: 048
  4. ADDERALL [Concomitant]
     Active Substance: AMPHETAMINE ASPARTATE\AMPHETAMINE SULFATE\DEXTROAMPHETAMINE SACCHARATE\DEXTROAMPHETAMINE SULFATE
     Indication: Fatigue
     Route: 048
     Dates: start: 202108
  5. WELLBUTRIN [Concomitant]
     Active Substance: BUPROPION HYDROCHLORIDE
     Indication: Depression
     Route: 048
  6. CALCIUM [Concomitant]
     Active Substance: CALCIUM
     Route: 048
     Dates: start: 201905
  7. VITAMIN D3 [Concomitant]
     Active Substance: CHOLECALCIFEROL
     Dosage: FREQUENCY TEXT:TAKE ONE IN MORNING, AND ONE AT BEDTIME
     Route: 048
  8. IRON [Concomitant]
     Active Substance: IRON
     Indication: Anaemia
     Route: 048
  9. VITAMIN C [Concomitant]
     Active Substance: ASCORBIC ACID
     Route: 048
  10. MELATONIN [Concomitant]
     Active Substance: MELATONIN
     Route: 048
  11. SOLU-MEDROL [Concomitant]
     Active Substance: METHYLPREDNISOLONE SODIUM SUCCINATE
     Route: 042
     Dates: start: 2006

REACTIONS (19)
  - COVID-19 [Recovered/Resolved with Sequelae]
  - Bronchitis [Recovered/Resolved]
  - Foot fracture [Unknown]
  - Fatigue [Recovered/Resolved]
  - Fall [Unknown]
  - Foot fracture [Unknown]
  - Multiple sclerosis [Unknown]
  - JC polyomavirus test positive [Unknown]
  - Anal incontinence [Unknown]
  - Urinary incontinence [Unknown]
  - Vision blurred [Unknown]
  - Pain in extremity [Unknown]
  - Vitamin B12 deficiency [Unknown]
  - Headache [Unknown]
  - Sleep disorder [Unknown]
  - Anxiety [Unknown]
  - Neutrophil count increased [Unknown]
  - Multiple sclerosis [Unknown]
  - White blood cell count increased [Unknown]

NARRATIVE: CASE EVENT DATE: 20190401
